FAERS Safety Report 4485690-X (Version None)
Quarter: 2004Q4

REPORT INFORMATION
  Report Type: 
  Country: None (occurrence: None)
  Receive Date: 20041022
  Receipt Date: 20041006
  Transmission Date: 20050328
  Serious: Yes (Death)
  Sender: FDA-Public Use
  Company Number: 2004AL000757

PATIENT
  Age: 42 Year

DRUGS (3)
  1. DILTIAZEM HYDROCHLORIDE [Suspect]
     Dosage: PO
     Route: 048
  2. ALPRAZOLAM TABLETS USP, 2 MG (PUREPAC) [Suspect]
     Dosage: PO
     Route: 048
  3. ETHANOL [Suspect]

REACTIONS (3)
  - ALCOHOL USE [None]
  - COMPLETED SUICIDE [None]
  - MULTIPLE DRUG OVERDOSE INTENTIONAL [None]
